FAERS Safety Report 9691744 (Version 4)
Quarter: 2014Q1

REPORT INFORMATION
  Report Type: Report from Study
  Country: AT (occurrence: AT)
  Receive Date: 20131115
  Receipt Date: 20140211
  Transmission Date: 20141002
  Serious: Yes (Hospitalization)
  Sender: FDA-Public Use
  Company Number: AT-EXELIXIS-XL18413003604

PATIENT
  Age: 60 Year
  Sex: Male
  Weight: 82 kg

DRUGS (15)
  1. XL184 [Suspect]
     Indication: PROSTATE CANCER
     Dosage: 60 MG, QD
     Route: 048
     Dates: start: 20131007, end: 20131031
  2. XL184 [Suspect]
     Dosage: 40 MG, QD
     Route: 048
     Dates: start: 20131127
  3. XL184 [Suspect]
     Indication: PROSTATE CANCER
     Dosage: 5 MG, BID
     Route: 048
     Dates: start: 20131007, end: 20131031
  4. XL184 [Suspect]
     Dosage: 5 MG, BID
     Route: 048
     Dates: start: 20131127
  5. TRAMADOL FARMAL RETARD [Concomitant]
  6. NOVALGIN [Concomitant]
  7. ELIGARD [Concomitant]
  8. XGEVA [Concomitant]
  9. CAL-D-VITA [Concomitant]
  10. PARKEMED [Concomitant]
  11. PANTOPRAZOLE [Concomitant]
  12. PASPERTIN [Concomitant]
  13. ENALAPRIL [Concomitant]
     Dosage: UNK
     Route: 048
  14. AMLODIPINE [Concomitant]
     Dosage: UNK
     Route: 048
     Dates: start: 20131031
  15. RAMIPRIL [Concomitant]
     Dosage: UNK
     Route: 048
     Dates: start: 20131031

REACTIONS (1)
  - Hypertensive crisis [Recovered/Resolved]
